FAERS Safety Report 10467312 (Version 2)
Quarter: 2014Q3

REPORT INFORMATION
  Report Type: Report from Study
  Country: FR (occurrence: FR)
  Receive Date: 20140922
  Receipt Date: 20140922
  Transmission Date: 20150326
  Serious: Yes (Hospitalization)
  Sender: FDA-Public Use
  Company Number: FR-009507513-1405FRA000241

PATIENT
  Age: 53 Year
  Sex: Male
  Weight: 85 kg

DRUGS (7)
  1. PEMBROLIZUMAB. [Suspect]
     Active Substance: PEMBROLIZUMAB
     Dosage: 10 MG/KG, QOW (DOSE REPORTED ALSO AS 100, UNIT NOT PROVIDED)
     Route: 042
     Dates: start: 20140131, end: 20140328
  2. CALCIUM CARBONATE (+) CHOLECALCIFEROL [Concomitant]
     Active Substance: CALCIUM CARBONATE\CHOLECALCIFEROL
     Indication: VITAMIN SUPPLEMENTATION
     Dosage: 1 TABLET, BID
     Route: 048
     Dates: start: 201311
  3. PEMBROLIZUMAB. [Suspect]
     Active Substance: PEMBROLIZUMAB
     Indication: MALIGNANT MELANOMA
     Dosage: 10 MG/KG, QOW (DOSE REPORTED ALSO AS 100, UNIT NOT PROVIDED)
     Route: 042
     Dates: start: 20140103, end: 20140103
  4. DABRAFENIB [Suspect]
     Active Substance: DABRAFENIB
     Indication: MALIGNANT MELANOMA
     Dosage: 150 MG, BID
     Route: 048
     Dates: start: 20140411, end: 20140416
  5. PEMBROLIZUMAB. [Suspect]
     Active Substance: PEMBROLIZUMAB
     Dosage: 10 MG/KG, QOW (DOSE REPORTED ALSO AS 100, UNIT NOT PROVIDED)
     Route: 042
     Dates: start: 20140117, end: 20140117
  6. XGEVA [Concomitant]
     Active Substance: DENOSUMAB
     Indication: MUSCULOSKELETAL PAIN
     Dosage: TOTAL DAILY DOSE 1 AMPULE, ONCE EVERY MONTH
     Route: 058
     Dates: start: 201311
  7. CALCIUM CARBONATE (+) CHOLECALCIFEROL [Concomitant]
     Active Substance: CALCIUM CARBONATE\CHOLECALCIFEROL
     Indication: PROPHYLAXIS

REACTIONS (1)
  - Cough [Recovered/Resolved]

NARRATIVE: CASE EVENT DATE: 20140118
